FAERS Safety Report 19265251 (Version 2)
Quarter: 2021Q2

REPORT INFORMATION
  Report Type: Spontaneous
  Country: JP (occurrence: JP)
  Receive Date: 20210517
  Receipt Date: 20210630
  Transmission Date: 20210717
  Serious: Yes (Death, Hospitalization, Other)
  Sender: FDA-Public Use
  Company Number: JP-BRISTOL-MYERS SQUIBB COMPANY-BMS-2021-030813

PATIENT
  Age: 63 Year
  Sex: Male
  Weight: 65.9 kg

DRUGS (3)
  1. YERVOY [Suspect]
     Active Substance: IPILIMUMAB
     Indication: METASTATIC RENAL CELL CARCINOMA
     Dosage: 67 MILLIGRAM, Q3WK
     Route: 041
     Dates: start: 20210107, end: 20210311
  2. OPDIVO [Suspect]
     Active Substance: NIVOLUMAB
     Indication: METASTATIC RENAL CELL CARCINOMA
     Dosage: 240 MILLIGRAM, Q3WK
     Route: 041
     Dates: start: 20210107, end: 20210311
  3. ZOLEDRONIC ACID [Concomitant]
     Active Substance: ZOLEDRONIC ACID
     Indication: PRODUCT USED FOR UNKNOWN INDICATION
     Dosage: 4 MILLIGRAM, Q4WK
     Route: 041
     Dates: start: 20210115, end: 20210311

REACTIONS (2)
  - Disseminated intravascular coagulation [Unknown]
  - Hepatic failure [Fatal]

NARRATIVE: CASE EVENT DATE: 20210318
